FAERS Safety Report 8954384 (Version 2)
Quarter: 2012Q4

REPORT INFORMATION
  Report Type: 
  Country: AT (occurrence: AT)
  Receive Date: 20121210
  Receipt Date: 20121214
  Transmission Date: 20130627
  Serious: Yes (Hospitalization, Other)
  Sender: FDA-Public Use
  Company Number: AT-AMGEN-AUTSP2012078486

PATIENT
  Age: 47 Year
  Sex: Female
  Weight: 57 kg

DRUGS (6)
  1. XGEVA [Suspect]
     Indication: METASTASES TO BONE
     Dosage: 120 mg, UNK
     Dates: start: 201204, end: 20121119
  2. AFINITOR [Concomitant]
  3. CALCIUM [Concomitant]
  4. VITAMIN D                          /00318501/ [Concomitant]
  5. ABRAXANE /01116001/ [Concomitant]
     Indication: CHEMOTHERAPY
     Dosage: 260 mg/m2, UNK
     Route: 042
     Dates: start: 20120412, end: 20121129
  6. HYDAL [Concomitant]
     Indication: PAIN
     Route: 048

REACTIONS (1)
  - Bone pain [Recovering/Resolving]
